FAERS Safety Report 9261724 (Version 1)
Quarter: 2013Q2

REPORT INFORMATION
  Report Type: Report from Study
  Country: SE (occurrence: SE)
  Receive Date: 20130429
  Receipt Date: 20130429
  Transmission Date: 20140414
  Serious: Yes (Hospitalization)
  Sender: FDA-Public Use
  Company Number: SE-PFIZER INC-2013132329

PATIENT
  Age: 70 Year
  Sex: Male

DRUGS (2)
  1. APIXABAN [Suspect]
     Indication: THROMBOSIS PROPHYLAXIS
     Dosage: 5 MG, DAILY
     Route: 048
     Dates: start: 20100907
  2. SPIRONOLACTONE [Suspect]
     Dosage: UNK
     Dates: start: 20070111, end: 20120505

REACTIONS (1)
  - Dehydration [Recovered/Resolved]
